FAERS Safety Report 8874538 (Version 2)
Quarter: 2012Q4

REPORT INFORMATION
  Report Type: 
  Country: US (occurrence: US)
  Receive Date: 20121030
  Receipt Date: 20121105
  Transmission Date: 20130627
  Serious: No
  Sender: FDA-Public Use
  Company Number: US-PFIZER INC-2012264445

PATIENT
  Age: 54 Year
  Sex: Female
  Weight: 63.4 kg

DRUGS (3)
  1. PREMARIN [Suspect]
     Indication: VAGINAL DRYNESS
     Dosage: 2 x week
     Route: 067
     Dates: start: 20120606, end: 20120927
  2. FLONASE [Concomitant]
     Dosage: UNK
  3. ADVAIR [Concomitant]
     Dosage: UNK

REACTIONS (3)
  - Drug hypersensitivity [Recovered/Resolved]
  - Application site erythema [Recovered/Resolved]
  - Application site irritation [Recovered/Resolved]
